FAERS Safety Report 13840630 (Version 5)
Quarter: 2017Q4

REPORT INFORMATION
  Report Type: Report from Study
  Country: US (occurrence: US)
  Receive Date: 20170807
  Receipt Date: 20171002
  Transmission Date: 20180320
  Serious: Yes (Hospitalization)
  Sender: FDA-Public Use
  Company Number: US-VIFOR (INTERNATIONAL) INC.-VIT-2017-08177

PATIENT
  Sex: Male
  Weight: 56.75 kg

DRUGS (10)
  1. VELTASSA [Suspect]
     Active Substance: PATIROMER
     Indication: HYPERKALAEMIA
     Route: 048
     Dates: start: 201706
  2. PREDNISONE. [Concomitant]
     Active Substance: PREDNISONE
  3. RENA VITE [Concomitant]
  4. PROGRAF [Concomitant]
     Active Substance: TACROLIMUS\TACROLIMUS ANHYDROUS
  5. SODIUM BICARBONATE. [Concomitant]
     Active Substance: SODIUM BICARBONATE
  6. VELTASSA [Suspect]
     Active Substance: PATIROMER
     Route: 048
     Dates: start: 2017
  7. ACETYLDIHYDROCODEINE HYDROCHLORIDE [Concomitant]
     Active Substance: ACETYLDIHYDROCODEINE HYDROCHLORIDE
     Indication: PAIN
  8. DAPSONE. [Concomitant]
     Active Substance: DAPSONE
  9. MAGNESIUM [Concomitant]
     Active Substance: MAGNESIUM
  10. DOCUSATE [Concomitant]
     Active Substance: DOCUSATE

REACTIONS (4)
  - Urinary tract infection [Recovered/Resolved]
  - Pyrexia [Recovered/Resolved]
  - Treatment noncompliance [Unknown]
  - Drug dose omission [Recovered/Resolved]

NARRATIVE: CASE EVENT DATE: 2017
